FAERS Safety Report 4867502-5 (Version None)
Quarter: 2005Q4

REPORT INFORMATION
  Report Type: 
  Country: None (occurrence: None)
  Receive Date: 20051222
  Receipt Date: 20051219
  Transmission Date: 20060501
  Serious: Yes (Death, Hospitalization)
  Sender: FDA-Public Use
  Company Number: AZAUS200500417

PATIENT
  Age: 90 Year
  Sex: Male
  Weight: 90.7194 kg

DRUGS (2)
  1. VIDAZA [Suspect]
     Indication: MYELODYSPLASTIC SYNDROME
     Dosage: 100 MG, DAILY X 5 DAYS, SUBCUTANEOUS
     Route: 058
     Dates: start: 20051003, end: 20051007
  2. ARANESP [Concomitant]

REACTIONS (4)
  - DISEASE PROGRESSION [None]
  - INJECTION SITE ERYTHEMA [None]
  - INJECTION SITE VESICLES [None]
  - MYELODYSPLASTIC SYNDROME [None]
